FAERS Safety Report 8983812 (Version 1)
Quarter: 2012Q4

REPORT INFORMATION
  Report Type: 
  Country: US (occurrence: US)
  Receive Date: 20121224
  Receipt Date: 20121224
  Transmission Date: 20130627
  Serious: Yes (Hospitalization)
  Sender: FDA-Public Use
  Company Number: US-ACTELION-A-US2005-08688

PATIENT
  Age: 69 Year
  Sex: Female

DRUGS (3)
  1. TRACLEER [Suspect]
     Indication: PULMONARY HYPERTENSION
     Dosage: 125 mg, bid
     Route: 048
     Dates: start: 20040714
  2. TRACLEER [Suspect]
     Dosage: 62.5 mg, bid
     Route: 048
     Dates: start: 20040622, end: 200407
  3. SYNTHROID [Concomitant]
     Dosage: 75 mcg, od
     Dates: start: 2003

REACTIONS (10)
  - Myocardial infarction [Recovered/Resolved]
  - Blood cholesterol increased [Unknown]
  - Diverticulitis [Recovered/Resolved]
  - Liver function test abnormal [Unknown]
  - Aspartate aminotransferase increased [Unknown]
  - Alanine aminotransferase increased [Unknown]
  - Neuralgia [Unknown]
  - Back disorder [Unknown]
  - Hot flush [Unknown]
  - Sleep apnoea syndrome [Not Recovered/Not Resolved]
